FAERS Safety Report 25484011 (Version 2)
Quarter: 2025Q3

REPORT INFORMATION
  Report Type: Report from Study
  Country: US (occurrence: US)
  Receive Date: 20250626
  Receipt Date: 20250710
  Transmission Date: 20251021
  Serious: Yes (Other)
  Sender: ABBVIE
  Company Number: US-ABBVIE-6341607

PATIENT
  Age: 43 Year
  Sex: Female

DRUGS (1)
  1. SKYRIZI [Suspect]
     Active Substance: RISANKIZUMAB-RZAA
     Indication: Psoriasis
     Route: 058
     Dates: start: 20250123

REACTIONS (3)
  - Dental implantation [Not Recovered/Not Resolved]
  - Dyspepsia [Recovering/Resolving]
  - Stomatitis [Unknown]

NARRATIVE: CASE EVENT DATE: 20250101
